FAERS Safety Report 4390593-5 (Version None)
Quarter: 2004Q2

REPORT INFORMATION
  Report Type: 
  Country: None (occurrence: None)
  Receive Date: 20040630
  Receipt Date: 20040616
  Transmission Date: 20050107
  Serious: Yes (Hospitalization)
  Sender: FDA-Public Use
  Company Number: US-2004-027078

PATIENT
  Age: 53 Year
  Sex: Female
  Weight: 59 kg

DRUGS (9)
  1. BETASERON [Suspect]
     Indication: MULTIPLE SCLEROSIS
     Dosage: 8 MIU, EVERY 2D, SUBCUTANEOUS
     Route: 058
     Dates: start: 20040506, end: 20040611
  2. LEXAPRO [Concomitant]
  3. ULTRAVATE (ULOBETASOL PROPIONATE) [Concomitant]
  4. NEXIUM [Concomitant]
  5. LORTAB [Concomitant]
  6. PROVIGIL [Concomitant]
  7. BEXTRA [Concomitant]
  8. CLORAZEPATE (CLORAZEPATE DIPOTASSIUM) [Concomitant]
  9. SONATA [Concomitant]

REACTIONS (6)
  - DRY SKIN [None]
  - DYSKINESIA [None]
  - LOSS OF CONSCIOUSNESS [None]
  - PRURITUS [None]
  - SPEECH DISORDER [None]
  - URINARY TRACT INFECTION [None]
